FAERS Safety Report 23824814 (Version 3)
Quarter: 2024Q3

REPORT INFORMATION
  Report Type: Spontaneous
  Country: DE (occurrence: DE)
  Receive Date: 20240507
  Receipt Date: 20240708
  Transmission Date: 20241016
  Serious: Yes (Life-Threatening)
  Sender: MYLAN
  Company Number: DE-MYLANLABS-2024M1039661

PATIENT
  Age: 46 Year
  Sex: Male
  Weight: 77 kg

DRUGS (1)
  1. EPINEPHRINE [Suspect]
     Active Substance: EPINEPHRINE
     Indication: Anaphylactic shock
     Dosage: UNK
     Route: 065

REACTIONS (3)
  - Device failure [Unknown]
  - Product quality issue [Unknown]
  - Drug dose omission by device [Unknown]
